FAERS Safety Report 13691948 (Version 1)
Quarter: 2017Q2

REPORT INFORMATION
  Report Type: Spontaneous
  Country: US (occurrence: US)
  Receive Date: 20170626
  Receipt Date: 20170626
  Transmission Date: 20170830
  Serious: No
  Sender: FDA-Public Use
  Company Number: US-BRACCO-014335

PATIENT

DRUGS (3)
  1. MULTIHANCE [Suspect]
     Active Substance: GADOBENATE DIMEGLUMINE
     Indication: ARTHROGRAM
     Route: 014
     Dates: start: 20170118, end: 20170118
  2. ISOVUE [Suspect]
     Active Substance: IOPAMIDOL
     Indication: ARTHROGRAM
     Route: 014
     Dates: start: 20170118, end: 20170118
  3. NORMAL SALINE [Concomitant]
     Active Substance: SODIUM CHLORIDE
     Indication: ARTHROGRAM
     Route: 014
     Dates: start: 20170118, end: 20170118

REACTIONS (1)
  - Drug administration error [Unknown]
